FAERS Safety Report 8502638-9 (Version None)
Quarter: 2012Q3

REPORT INFORMATION
  Report Type: 
  Country: None (occurrence: None)
  Receive Date: 20120711
  Receipt Date: 20070226
  Transmission Date: 20120928
  Serious: Yes (Other)
  Sender: FDA-Public Use
  Company Number: CO-PFIZER INC-2012165147

PATIENT
  Age: 60 Year
  Sex: Female

DRUGS (5)
  1. HYDROCHLOROTHIAZIDE [Concomitant]
     Dosage: 25 MG EVERY 24 HOURS
     Dates: start: 20050816
  2. ACURETIC [Suspect]
     Indication: HYPERTENSION
     Dosage: [QUINAPRIL HCL 20 MG]/ [HYDROCHLOROTHIAZIDE 12.5MG], EVERY 24 HOURS
     Dates: start: 20041119
  3. ASPIRIN [Concomitant]
     Dosage: 100 MG EVERY 24 HOURS
     Dates: start: 20050816
  4. LIPITOR [Suspect]
     Indication: DYSLIPIDAEMIA
     Dosage: 10 MG EVERY 24 HOURS
     Dates: start: 20041119
  5. METOPROLOL TARTRATE [Concomitant]
     Dosage: 50 MG EVERY 12 HOURS
     Dates: start: 20050816

REACTIONS (10)
  - COUGH [None]
  - DYSURIA [None]
  - OBESITY [None]
  - OEDEMA [None]
  - DYSPNOEA [None]
  - URINARY TRACT INFECTION [None]
  - HYPERTENSIVE EMERGENCY [None]
  - CHEST PAIN [None]
  - GASTRITIS [None]
  - PALPITATIONS [None]
